FAERS Safety Report 8437884-6 (Version None)
Quarter: 2012Q2

REPORT INFORMATION
  Report Type: 
  Country: None (occurrence: None)
  Receive Date: 20120614
  Receipt Date: 20120515
  Transmission Date: 20120825
  Serious: No
  Sender: FDA-Public Use
  Company Number: US-AMGEN-USASP2012026820

PATIENT
  Age: 68 Year
  Sex: Male

DRUGS (5)
  1. PROVENGE [Concomitant]
  2. CALCIUM CARBONATE [Concomitant]
  3. XGEVA [Suspect]
     Indication: PROSTATE CANCER
     Dosage: UNK UNK, Q4WK
     Dates: start: 20120320
  4. FIRMAGON [Concomitant]
  5. VITAMINS NOS [Concomitant]

REACTIONS (10)
  - PAIN IN EXTREMITY [None]
  - INJECTION SITE PAIN [None]
  - ARTHRALGIA [None]
  - WALKING AID USER [None]
  - GROIN PAIN [None]
  - MUSCLE STRAIN [None]
  - PELVIC PAIN [None]
  - BONE PAIN [None]
  - BACK PAIN [None]
  - BLOOD ALKALINE PHOSPHATASE INCREASED [None]
